FAERS Safety Report 22247602 (Version 1)
Quarter: 2023Q2

REPORT INFORMATION
  Report Type: Spontaneous
  Country: US (occurrence: US)
  Receive Date: 20230425
  Receipt Date: 20230425
  Transmission Date: 20230722
  Serious: No
  Sender: FDA-Public Use
  Company Number: US-TOPROL-2022000171

PATIENT
  Sex: Male

DRUGS (3)
  1. METOPROLOL SUCCINATE [Suspect]
     Active Substance: METOPROLOL SUCCINATE
     Indication: Atrial fibrillation
     Dosage: HALF A TABLET
     Route: 065
  2. METOPROLOL SUCCINATE [Suspect]
     Active Substance: METOPROLOL SUCCINATE
     Indication: Blood pressure abnormal
  3. METOPROLOL SUCCINATE [Suspect]
     Active Substance: METOPROLOL SUCCINATE
     Indication: Product use in unapproved indication

REACTIONS (3)
  - Onychomycosis [Not Recovered/Not Resolved]
  - Nail disorder [Not Recovered/Not Resolved]
  - Product use in unapproved indication [Unknown]
